FAERS Safety Report 5886001-5 (Version None)
Quarter: 2008Q3

REPORT INFORMATION
  Report Type: 
  Country: None (occurrence: None)
  Receive Date: 20080917
  Receipt Date: 20080905
  Transmission Date: 20090109
  Serious: Yes (Other)
  Sender: FDA-Public Use
  Company Number: US-ROCHE-584972

PATIENT
  Sex: Female
  Weight: 78 kg

DRUGS (1)
  1. CAPECITABINE [Suspect]
     Indication: BREAST CANCER
     Dosage: ONE WEEK ON AND TWO WEEKS OFF
     Route: 048
     Dates: start: 20080703, end: 20080701

REACTIONS (1)
  - DISEASE PROGRESSION [None]
